FAERS Safety Report 4518623-8 (Version None)
Quarter: 2004Q4

REPORT INFORMATION
  Report Type: 
  Country: None (occurrence: None)
  Receive Date: 20041104
  Receipt Date: 20040713
  Transmission Date: 20050328
  Serious: Yes (Other)
  Sender: FDA-Public Use
  Company Number: DSA_24664_2004

PATIENT
  Age: 50 Year

DRUGS (7)
  1. ATIVAN [Suspect]
     Dosage: DF DAILY
  2. PAXIL [Suspect]
     Indication: DEPRESSION
     Dosage: 75 MG, Q DAY PO
     Route: 048
     Dates: start: 20040201, end: 20040610
  3. DILANTIN [Concomitant]
  4. LEVOXYL [Concomitant]
  5. DIOVAN [Concomitant]
  6. KLONOPIN [Concomitant]
  7. SEROQUEL [Concomitant]

REACTIONS (2)
  - INTENTIONAL OVERDOSE [None]
  - SOMNOLENCE [None]
